FAERS Safety Report 5312569-3 (Version None)
Quarter: 2007Q2

REPORT INFORMATION
  Report Type: 
  Country: None (occurrence: None)
  Receive Date: 20070430
  Receipt Date: 20070119
  Transmission Date: 20071010
  Serious: No
  Sender: FDA-Public Use
  Company Number: 2007UW01240

PATIENT
  Age: 55 Year
  Sex: Female
  Weight: 64.9 kg

DRUGS (4)
  1. NEXIUM [Suspect]
     Indication: GASTROOESOPHAGEAL REFLUX DISEASE
     Route: 048
  2. ACTONEL [Concomitant]
  3. ZOLOFT [Concomitant]
  4. CALCIUM CHLORIDE [Concomitant]

REACTIONS (1)
  - OSTEOPOROSIS [None]
